FAERS Safety Report 6554750-1 (Version None)
Quarter: 2010Q1

REPORT INFORMATION
  Report Type: 
  Country: None (occurrence: None)
  Receive Date: 20100127
  Receipt Date: 20100114
  Transmission Date: 20100710
  Serious: Yes (Hospitalization)
  Sender: FDA-Public Use
  Company Number: US-SANOFI-AVENTIS-2010SA002462

PATIENT
  Age: 49 Year
  Sex: Female
  Weight: 64.3 kg

DRUGS (18)
  1. ELOXATIN [Suspect]
     Dosage: 60 MG/M2, 85 MG/M2
     Route: 051
     Dates: start: 20091223, end: 20091223
  2. ELOXATIN [Suspect]
     Dosage: 60 MG/M2, 85 MG/M2
     Route: 051
     Dates: start: 20091111, end: 20091111
  3. ELOXATIN [Suspect]
     Dosage: 60 MG/M2, 85 MG/M2
     Route: 051
     Dates: start: 20090701, end: 20090701
  4. GEMCITABINE [Suspect]
     Route: 051
     Dates: start: 20091223, end: 20091223
  5. GEMCITABINE [Suspect]
     Route: 051
     Dates: start: 20090522, end: 20090522
  6. GEMCITABINE [Suspect]
     Route: 051
     Dates: start: 20091111, end: 20091111
  7. LOVENOX [Concomitant]
     Indication: PORTAL VEIN THROMBOSIS
     Route: 058
     Dates: start: 20091013
  8. METHADONE [Concomitant]
     Dosage: 15 TO 20 MG 5 - 6 TIMES DAILY
     Route: 065
  9. OXYCODONE [Concomitant]
     Indication: PAIN
     Dosage: 5 MG TO 10 MG 4 TO 6 TIMES PER DAY
     Route: 065
  10. PRILOSEC [Concomitant]
     Route: 048
  11. VITAMIN D [Concomitant]
  12. MULTI-VITAMINS [Concomitant]
  13. PROMETHAZINE [Concomitant]
     Indication: NAUSEA
     Route: 065
  14. PANCREASE MT [Concomitant]
     Dosage: 2 TO 4 TIMES WITH MEALS
  15. SPIRONOLACTONE [Concomitant]
     Route: 048
  16. LASIX [Concomitant]
     Route: 048
  17. VITAMINS WITH MINERALS [Concomitant]
     Route: 048
  18. XELODA [Concomitant]

REACTIONS (7)
  - ANAEMIA [None]
  - ARTERIAL THROMBOSIS [None]
  - BACTERIAL SEPSIS [None]
  - INFARCTION [None]
  - LIVER ABSCESS [None]
  - PORTAL VEIN THROMBOSIS [None]
  - THROMBOCYTOPENIA [None]
